FAERS Safety Report 14842555 (Version 1)
Quarter: 2018Q2

REPORT INFORMATION
  Report Type: Spontaneous
  Country: AT (occurrence: AT)
  Receive Date: 20180503
  Receipt Date: 20180503
  Transmission Date: 20180711
  Serious: Yes (Other)
  Sender: FDA-Public Use
  Company Number: AT-SEATTLE GENETICS-2018SGN01023

PATIENT
  Age: 31 Year
  Sex: Male

DRUGS (2)
  1. ADCETRIS [Suspect]
     Active Substance: BRENTUXIMAB VEDOTIN
     Indication: GERM CELL CANCER METASTATIC
     Route: 065
  2. PEMBROLIZUMAB. [Suspect]
     Active Substance: PEMBROLIZUMAB
     Indication: GERM CELL CANCER METASTATIC
     Route: 065

REACTIONS (3)
  - Off label use [Unknown]
  - Pneumonitis [Unknown]
  - Immune-mediated hepatitis [Unknown]
